FAERS Safety Report 9508643 (Version 1)
Quarter: 2013Q3

REPORT INFORMATION
  Report Type: Spontaneous
  Country: IT (occurrence: IT)
  Receive Date: 20130909
  Receipt Date: 20130909
  Transmission Date: 20140515
  Serious: Yes (Hospitalization, Other)
  Sender: FDA-Public Use
  Company Number: IT-PFIZER INC-2013256118

PATIENT
  Age: 28 Year
  Sex: Male

DRUGS (2)
  1. LEVOFLOXACIN [Suspect]
     Dosage: 500 MG, UNK
     Route: 048
  2. PIPERACILLIN/TAZOBACTAM [Suspect]
     Dosage: UNK
     Route: 042

REACTIONS (7)
  - Kounis syndrome [Unknown]
  - Electrocardiogram ST segment elevation [Recovered/Resolved]
  - Stridor [Unknown]
  - Chest pain [Unknown]
  - Angioedema [Unknown]
  - Urticaria [Unknown]
  - Pruritus [Unknown]
